FAERS Safety Report 17223025 (Version 1)
Quarter: 2020Q1

REPORT INFORMATION
  Report Type: Spontaneous
  Country: TR (occurrence: TR)
  Receive Date: 20200102
  Receipt Date: 20200102
  Transmission Date: 20200409
  Serious: Yes (Other)
  Sender: FDA-Public Use
  Company Number: TR-009507513-1912TUR011313

PATIENT
  Age: 71 Year
  Sex: Female

DRUGS (3)
  1. LUSTRAL [Concomitant]
     Active Substance: SERTRALINE HYDROCHLORIDE
  2. PLAVIX [Concomitant]
     Active Substance: CLOPIDOGREL BISULFATE
  3. HYZAAR [Suspect]
     Active Substance: HYDROCHLOROTHIAZIDE\LOSARTAN POTASSIUM
     Dosage: ONCE A DAY
     Route: 048
     Dates: start: 2012

REACTIONS (2)
  - Colon cancer [Unknown]
  - Coronary arterial stent insertion [Unknown]
